FAERS Safety Report 15845033 (Version 4)
Quarter: 2019Q1

REPORT INFORMATION
  Report Type: Spontaneous
  Country: US (occurrence: US)
  Receive Date: 20190119
  Receipt Date: 20190322
  Transmission Date: 20190417
  Serious: No
  Sender: FDA-Public Use
  Company Number: US-JNJFOC-20190100571

PATIENT
  Sex: Female
  Weight: 49.9 kg

DRUGS (1)
  1. TYLENOL REGULAR STRENGTH [Suspect]
     Active Substance: ACETAMINOPHEN
     Indication: SLEEP DISORDER THERAPY
     Dosage: 1 TABLET AS NEEDED
     Route: 048
     Dates: end: 20181230

REACTIONS (2)
  - Product use in unapproved indication [Unknown]
  - Product label issue [Unknown]
